FAERS Safety Report 9789685 (Version 2)
Quarter: 2016Q1

REPORT INFORMATION
  Report Type: Spontaneous
  Country: US (occurrence: None)
  Receive Date: 20131227
  Receipt Date: 20160203
  Transmission Date: 20160526
  Serious: Yes (Death, Other)
  Sender: FDA-Public Use
  Company Number: ADR-2013-02328

PATIENT
  Age: 62 Year
  Sex: Male

DRUGS (2)
  1. DILAUDID [Suspect]
     Active Substance: HYDROMORPHONE HYDROCHLORIDE
     Indication: PAIN
     Dosage: 774.78 MCG/DAY
  2. BACLOFEN INTRATHECAL 150MCG/ML [Suspect]
     Active Substance: BACLOFEN
     Indication: PAIN
     Dosage: 154.96 MCG/DAY

REACTIONS (3)
  - No therapeutic response [None]
  - Myelodysplastic syndrome [None]
  - Condition aggravated [None]
